FAERS Safety Report 20475693 (Version 2)
Quarter: 2022Q1

REPORT INFORMATION
  Report Type: Spontaneous
  Country: US (occurrence: US)
  Receive Date: 20220215
  Receipt Date: 20220325
  Transmission Date: 20220423
  Serious: No
  Sender: FDA-Public Use
  Company Number: US-PFIZER INC-202200092679

PATIENT
  Age: 13 Year
  Sex: Female
  Weight: 41.28 kg

DRUGS (1)
  1. GENOTROPIN [Suspect]
     Active Substance: SOMATROPIN
     Indication: Growth hormone deficiency
     Dosage: UNK, 1X/DAY (2.2 BY INJECTION ONCE DAILY AT BEDTIME)

REACTIONS (3)
  - Drug dose omission by device [Recovered/Resolved]
  - Device power source issue [Unknown]
  - Device use issue [Unknown]

NARRATIVE: CASE EVENT DATE: 20220114
